FAERS Safety Report 6720107-3 (Version None)
Quarter: 2010Q2

REPORT INFORMATION
  Report Type: 
  Country: None (occurrence: None)
  Receive Date: 20100507
  Receipt Date: 20100423
  Transmission Date: 20101027
  Serious: Yes (Other)
  Sender: FDA-Public Use
  Company Number: GB-ACCORD-004760

PATIENT
  Age: 72 Year
  Sex: Female
  Weight: 96 kg

DRUGS (7)
  1. SIMVASTATIN [Suspect]
     Indication: DRUG USE FOR UNKNOWN INDICATION
     Dosage: / ORAL
     Route: 048
  2. ATORVASTATIN CALCIUM [Suspect]
     Indication: DRUG USE FOR UNKNOWN INDICATION
     Dates: end: 20040201
  3. PIOGLITAZONE [Suspect]
     Indication: TYPE 2 DIABETES MELLITUS
     Dosage: 30.00-MG-1.00PER-1.0DAYS
     Dates: start: 20070201, end: 20070501
  4. ROSIGLITAZONE [Suspect]
     Indication: TYPE 2 DIABETES MELLITUS
     Dosage: 8.00-MG-1.00PER-1.0DAYS
     Dates: start: 20050601, end: 20060901
  5. SUPRALIP(SUPRALIP) [Suspect]
     Indication: DRUG USE FOR UNKNOWN INDICATION
     Dosage: 160.00-MG-1.00PER-1.0 DAYS
     Dates: start: 20060901
  6. METFORMIN HCL [Concomitant]
  7. ROSUVASTATIN(ROSUVASTATIN) [Concomitant]

REACTIONS (2)
  - HIGH DENSITY LIPOPROTEIN DECREASED [None]
  - MYALGIA [None]
